FAERS Safety Report 10525300 (Version 1)
Quarter: 2014Q4

REPORT INFORMATION
  Report Type: Spontaneous
  Country: US (occurrence: US)
  Receive Date: 20141017
  Receipt Date: 20141017
  Transmission Date: 20150528
  Serious: No
  Sender: FDA-Public Use
  Company Number: US-GLAXOSMITHKLINE-US2014GSK007870

PATIENT
  Sex: Male

DRUGS (6)
  1. REQUIP [Suspect]
     Active Substance: ROPINIROLE HYDROCHLORIDE
     Indication: PARKINSONISM
     Dosage: 8 MG, QD
     Route: 048
     Dates: start: 2009
  2. NORVIR [Concomitant]
     Active Substance: RITONAVIR
  3. LEXIVA [Concomitant]
     Active Substance: FOSAMPRENAVIR CALCIUM
  4. ATRIPLA [Concomitant]
     Active Substance: EFAVIRENZ\EMTRICITABINE\TENOFOVIR DISOPROXIL FUMARATE
  5. ROPINIROLE. [Suspect]
     Active Substance: ROPINIROLE
     Indication: PARKINSONISM
     Dosage: 2 MG, QID
     Route: 048
  6. PRAVASTATIN [Concomitant]
     Active Substance: PRAVASTATIN\PRAVASTATIN SODIUM

REACTIONS (6)
  - Depressed mood [Not Recovered/Not Resolved]
  - Condition aggravated [Recovering/Resolving]
  - Tremor [Not Recovered/Not Resolved]
  - Product substitution issue [Unknown]
  - Gait disturbance [Not Recovered/Not Resolved]
  - Drug ineffective [Unknown]
